FAERS Safety Report 18916954 (Version 1)
Quarter: 2021Q1

REPORT INFORMATION
  Report Type: Spontaneous
  Country: US (occurrence: US)
  Receive Date: 20210219
  Receipt Date: 20210219
  Transmission Date: 20210420
  Serious: Yes (Other)
  Sender: FDA-Public Use
  Company Number: US-MYLANLABS-2021M1009198

PATIENT
  Sex: Male

DRUGS (1)
  1. MUSE [Suspect]
     Active Substance: ALPROSTADIL
     Indication: ERECTILE DYSFUNCTION
     Dosage: 1000 MICROGRAM
     Route: 066

REACTIONS (4)
  - Product preparation error [Recovered/Resolved]
  - Product label issue [Recovering/Resolving]
  - Drug ineffective [Not Recovered/Not Resolved]
  - Product packaging quantity issue [Unknown]
